FAERS Safety Report 21823779 (Version 4)
Quarter: 2023Q1

REPORT INFORMATION
  Report Type: Report from Study
  Country: FR (occurrence: FR)
  Receive Date: 20230105
  Receipt Date: 20230213
  Transmission Date: 20230418
  Serious: Yes (Hospitalization)
  Sender: FDA-Public Use
  Company Number: FR-GLAXOSMITHKLINE-FR2023000429

PATIENT

DRUGS (21)
  1. NIRAPARIB [Suspect]
     Active Substance: NIRAPARIB
     Indication: Non-small cell lung cancer
     Dosage: DOSE AT CYCLE 1 - DAY 1
     Route: 048
     Dates: start: 20220608
  2. NIRAPARIB [Suspect]
     Active Substance: NIRAPARIB
     Dosage: DOSE AT CYCLE 1 - DAY 15
     Route: 048
     Dates: start: 20220622
  3. NIRAPARIB [Suspect]
     Active Substance: NIRAPARIB
     Dosage: DOSE AT CYCLE 2 - DAY 1
     Route: 048
     Dates: start: 20220628
  4. NIRAPARIB [Suspect]
     Active Substance: NIRAPARIB
     Dosage: DOSE AT CYCLE 3 - DAY 1
     Route: 048
     Dates: start: 20220720
  5. NIRAPARIB [Suspect]
     Active Substance: NIRAPARIB
     Dosage: DOSE AT CYCLE 4 - DAY 1
     Route: 048
     Dates: start: 20220810
  6. NIRAPARIB [Suspect]
     Active Substance: NIRAPARIB
     Dosage: DOSE AT CYCLE 5 - DAY 1
     Route: 048
     Dates: start: 20220831
  7. NIRAPARIB [Suspect]
     Active Substance: NIRAPARIB
     Dosage: DOSE AT CYCLE 6 - DAY 1
     Route: 048
     Dates: start: 20220921
  8. NIRAPARIB [Suspect]
     Active Substance: NIRAPARIB
     Dosage: DOSE AT DAY 1
     Route: 048
     Dates: start: 20221012
  9. NIRAPARIB [Suspect]
     Active Substance: NIRAPARIB
     Dosage: DOSE AT DAY 1
     Route: 048
     Dates: start: 20221102
  10. NIRAPARIB [Suspect]
     Active Substance: NIRAPARIB
     Dosage: DOSE AT DAY 1
     Route: 048
     Dates: start: 20221123
  11. NIRAPARIB [Suspect]
     Active Substance: NIRAPARIB
     Dosage: DOSE AT DAY 1
     Route: 048
     Dates: start: 20221219, end: 20230101
  12. PEMBROLIZUMAB [Suspect]
     Active Substance: PEMBROLIZUMAB
     Indication: Non-small cell lung cancer
     Dosage: DOSE AT CYCLE 1 - DAY 1
     Route: 042
     Dates: start: 20220608, end: 20220608
  13. PEMBROLIZUMAB [Suspect]
     Active Substance: PEMBROLIZUMAB
     Dosage: DOSE AT CYCLE 2 - DAY 1
     Route: 042
     Dates: start: 20220628, end: 20220628
  14. PEMBROLIZUMAB [Suspect]
     Active Substance: PEMBROLIZUMAB
     Dosage: DOSE AT CYCLE 3 - DAY 1
     Route: 042
     Dates: start: 20220720, end: 20220720
  15. PEMBROLIZUMAB [Suspect]
     Active Substance: PEMBROLIZUMAB
     Dosage: DOSE AT CYCLE 4 - DAY 1
     Route: 042
     Dates: start: 20220810, end: 20220810
  16. PEMBROLIZUMAB [Suspect]
     Active Substance: PEMBROLIZUMAB
     Dosage: DOSE AT CYCLE 5 - DAY 1
     Route: 042
     Dates: start: 20220831, end: 20220831
  17. PEMBROLIZUMAB [Suspect]
     Active Substance: PEMBROLIZUMAB
     Dosage: DOSE AT CYCLE 6 - DAY 1
     Route: 042
     Dates: start: 20220921, end: 20220921
  18. PEMBROLIZUMAB [Suspect]
     Active Substance: PEMBROLIZUMAB
     Dosage: DOSE AT DAY 1
     Route: 042
     Dates: start: 20221012, end: 20221012
  19. PEMBROLIZUMAB [Suspect]
     Active Substance: PEMBROLIZUMAB
     Dosage: DOSE AT DAY 1
     Route: 042
     Dates: start: 20221102, end: 20221102
  20. PEMBROLIZUMAB [Suspect]
     Active Substance: PEMBROLIZUMAB
     Dosage: DOSE AT DAY 1
     Route: 042
     Dates: start: 20221123, end: 20221123
  21. PEMBROLIZUMAB [Suspect]
     Active Substance: PEMBROLIZUMAB
     Dosage: DOSE AT DAY 1
     Route: 042
     Dates: start: 20221219, end: 20221219

REACTIONS (1)
  - Respiratory distress [Recovered/Resolved]

NARRATIVE: CASE EVENT DATE: 20230102
